FAERS Safety Report 8182470 (Version 3)
Quarter: 2015Q3

REPORT INFORMATION
  Report Type: Report from Study
  Country: BR (occurrence: BR)
  Receive Date: 20111015
  Receipt Date: 20150805
  Transmission Date: 20151125
  Serious: Yes (Hospitalization)
  Sender: FDA-Public Use
  Company Number: BR-ROCHE-1002509

PATIENT
  Sex: Male
  Weight: 100 kg

DRUGS (14)
  1. MABTHERA [Suspect]
     Active Substance: RITUXIMAB
     Indication: RHEUMATOID ARTHRITIS
     Route: 042
     Dates: start: 201003
  2. SINVASTACOR [Concomitant]
     Active Substance: SIMVASTATIN
     Route: 065
  3. PIASCLEDINE (BRAZIL) [Concomitant]
     Route: 065
  4. SPIRIVA RESPIMAT [Concomitant]
     Active Substance: TIOTROPIUM BROMIDE
  5. NEXIUM [Concomitant]
     Active Substance: ESOMEPRAZOLE MAGNESIUM
     Route: 065
  6. TIORFAN [Concomitant]
     Active Substance: RACECADOTRIL
     Route: 065
  7. STILNOX [Concomitant]
     Active Substance: ZOLPIDEM TARTRATE
     Route: 065
  8. PROTOS (BRAZIL) [Concomitant]
     Active Substance: STRONTIUM RANELATE
     Route: 065
  9. PLAGRIL [Concomitant]
     Route: 065
  10. MABTHERA [Suspect]
     Active Substance: RITUXIMAB
     Route: 042
     Dates: start: 2011
  11. PONDERA [Concomitant]
     Active Substance: PAROXETINE HYDROCHLORIDE
     Route: 065
  12. ZYLORIC [Concomitant]
     Active Substance: ALLOPURINOL
     Route: 065
  13. DIOVAN [Concomitant]
     Active Substance: VALSARTAN
     Dosage: 80/5 MG
     Route: 065
  14. MODURETIC 5-50 [Concomitant]
     Active Substance: AMILORIDE HYDROCHLORIDE\HYDROCHLOROTHIAZIDE
     Dosage: 50/5 MG
     Route: 065

REACTIONS (7)
  - Musculoskeletal pain [Not Recovered/Not Resolved]
  - Joint stiffness [Recovered/Resolved]
  - Viral infection [Recovered/Resolved]
  - Arthralgia [Not Recovered/Not Resolved]
  - Immunosuppression [Recovered/Resolved]
  - Pneumonia [Recovered/Resolved]
  - Mobility decreased [Not Recovered/Not Resolved]
